FAERS Safety Report 9721568 (Version 2)
Quarter: 2013Q4

REPORT INFORMATION
  Report Type: Spontaneous
  Country: ID (occurrence: ID)
  Receive Date: 20131130
  Receipt Date: 20131209
  Transmission Date: 20140711
  Serious: Yes (Other)
  Sender: FDA-Public Use
  Company Number: ID-009507513-1311IDN011977

PATIENT
  Age: 60 Year
  Sex: Female

DRUGS (2)
  1. JANUMET [Suspect]
     Indication: TYPE 2 DIABETES MELLITUS
     Dosage: STRENGTH: 500MG/50MG, FREQUENCY: BID
     Route: 048
     Dates: start: 201306, end: 201311
  2. GLUCOBAY [Concomitant]
     Dosage: UNK

REACTIONS (4)
  - Discomfort [Recovered/Resolved]
  - Headache [Recovered/Resolved]
  - Product colour issue [Unknown]
  - Product size issue [Unknown]
